FAERS Safety Report 6151998-5 (Version None)
Quarter: 2009Q2

REPORT INFORMATION
  Report Type: 
  Country: None (occurrence: None)
  Receive Date: 20090409
  Receipt Date: 20090409
  Transmission Date: 20091009
  Serious: No
  Sender: FDA-Public Use
  Company Number: None

PATIENT
  Sex: Female
  Weight: 58.9676 kg

DRUGS (3)
  1. BENADRYL [Suspect]
     Indication: SLEEP DISORDER
     Dosage: 25MG  EVERY 24 HOURS PO
     Route: 048
     Dates: start: 20040501, end: 20090407
  2. TYLENOL (CAPLET) [Suspect]
     Indication: PAIN
     Dosage: 25MG  EVERY 24 HOURS PO
     Route: 048
     Dates: start: 20050101, end: 20090406
  3. TYLENOL (CAPLET) [Suspect]
     Indication: SLEEP DISORDER
     Dosage: 25MG  EVERY 24 HOURS PO
     Route: 048
     Dates: start: 20050101, end: 20090406

REACTIONS (6)
  - HEADACHE [None]
  - HYPERSENSITIVITY [None]
  - HYPOAESTHESIA [None]
  - MOVEMENT DISORDER [None]
  - PARAESTHESIA [None]
  - STRESS [None]
